FAERS Safety Report 9196380 (Version 3)
Quarter: 2013Q4

REPORT INFORMATION
  Report Type: Spontaneous
  Country: US (occurrence: None)
  Receive Date: 20120703
  Receipt Date: 20131226
  Transmission Date: 20140711
  Serious: Yes (Other)
  Sender: FDA-Public Use
  Company Number: PHEH2012US008921

PATIENT
  Age: 40 Year
  Sex: Male
  Weight: 105.7 kg

DRUGS (3)
  1. GILENYA (FTY)CAPSULE, 0.5MG [Suspect]
     Indication: MULTIPLE SCLEROSIS
     Route: 048
     Dates: start: 20110424
  2. BACLOFEN (BACLOFEN) 20MG [Concomitant]
  3. SUBOXONE (BUPRENORPHINE, NALOXONE) [Concomitant]

REACTIONS (8)
  - Pain [None]
  - Fatigue [None]
  - Pain in extremity [None]
  - Paraesthesia [None]
  - Back pain [None]
  - Headache [None]
  - Muscle spasms [None]
  - Multiple sclerosis relapse [None]
